FAERS Safety Report 21987033 (Version 1)
Quarter: 2023Q1

REPORT INFORMATION
  Report Type: Spontaneous
  Country: US (occurrence: None)
  Receive Date: 20230211
  Receipt Date: 20230211
  Transmission Date: 20230418
  Serious: No
  Sender: FDA-Public Use
  Company Number: None

PATIENT
  Age: 69 Year
  Sex: Female
  Weight: 62.78 kg

DRUGS (19)
  1. CAPECITABINE [Suspect]
     Active Substance: CAPECITABINE
     Indication: Pancreatic carcinoma
     Dosage: FREQUENCY : TWICE A DAY;?
     Route: 048
     Dates: start: 20210225
  2. ALPRAZOLAM [Concomitant]
     Active Substance: ALPRAZOLAM
  3. BENTYL [Concomitant]
     Active Substance: DICYCLOMINE HYDROCHLORIDE
  4. FLONASE [Concomitant]
     Active Substance: FLUTICASONE PROPIONATE
  5. LATANOPROST [Concomitant]
     Active Substance: LATANOPROST
  6. GABAPENTIN [Concomitant]
     Active Substance: GABAPENTIN
  7. FLONASE [Concomitant]
     Active Substance: FLUTICASONE PROPIONATE
  8. LISINOPRIL [Concomitant]
     Active Substance: LISINOPRIL
  9. LUMIGAN [Concomitant]
     Active Substance: BIMATOPROST
  10. LYRICA [Concomitant]
     Active Substance: PREGABALIN
  11. METHADONE [Concomitant]
     Active Substance: METHADONE HYDROCHLORIDE
  12. MIRTAZAPINE [Concomitant]
     Active Substance: MIRTAZAPINE
  13. VITAMINS [Concomitant]
     Active Substance: VITAMINS
  14. ZOFRAN [Concomitant]
     Active Substance: ONDANSETRON HYDROCHLORIDE
  15. OXCARBAZEPINE [Concomitant]
     Active Substance: OXCARBAZEPINE
  16. ZYPREXA [Concomitant]
     Active Substance: OLANZAPINE
  17. ZOLPIDEM [Concomitant]
     Active Substance: ZOLPIDEM TARTRATE
  18. SYNTHROID [Concomitant]
     Active Substance: LEVOTHYROXINE SODIUM
  19. PEPCID [Concomitant]
     Active Substance: FAMOTIDINE

REACTIONS (1)
  - Complication associated with device [None]

NARRATIVE: CASE EVENT DATE: 20230211
